FAERS Safety Report 24429698 (Version 2)
Quarter: 2025Q4

REPORT INFORMATION
  Report Type: Spontaneous
  Country: US (occurrence: US)
  Receive Date: 20241012
  Receipt Date: 20251016
  Transmission Date: 20260117
  Serious: No
  Sender: CELLTRION
  Company Number: US-CELLTRION INC.-2024US017715

PATIENT

DRUGS (4)
  1. INFLECTRA [Suspect]
     Active Substance: INFLIXIMAB-DYYB
     Indication: Rheumatoid arthritis
     Dosage: 336 MG
     Route: 042
     Dates: start: 20240716
  2. INFLECTRA [Suspect]
     Active Substance: INFLIXIMAB-DYYB
     Dosage: 336 MG EVERY 4 WEEKS
     Route: 065
     Dates: start: 20240320
  3. METHOTREXATE [Concomitant]
     Active Substance: METHOTREXATE
     Indication: Rheumatoid arthritis
     Dosage: 20MG; TAKES 8 OF THE 2.5MG TABLETS ONCE A WEEK BY MOUTH
     Route: 048
     Dates: start: 20231130
  4. FOLIC ACID [Concomitant]
     Active Substance: FOLIC ACID
     Indication: Rheumatoid arthritis
     Dosage: 1MG OR 1000MCG TABLETS ONCE DAILY BY MOUTH EXPECT ON DAY OF METHOTREXATE
     Route: 048
     Dates: start: 20240313

REACTIONS (7)
  - Tremor [Recovering/Resolving]
  - Nasal pruritus [Recovering/Resolving]
  - Muscular weakness [Unknown]
  - Hypoaesthesia [Unknown]
  - Paraesthesia [Unknown]
  - Incorrect product administration duration [Unknown]
  - Incorrect dose administered [Unknown]

NARRATIVE: CASE EVENT DATE: 20240716
